FAERS Safety Report 6430776-3 (Version None)
Quarter: 2009Q4

REPORT INFORMATION
  Report Type: 
  Country: None (occurrence: None)
  Receive Date: 20091106
  Receipt Date: 20091103
  Transmission Date: 20100525
  Serious: Yes (Death)
  Sender: FDA-Public Use
  Company Number: US-JNJFOC-20091101551

PATIENT
  Sex: Male
  Weight: 67.13 kg

DRUGS (1)
  1. DURAGESIC-100 [Suspect]
     Indication: CANCER PAIN
     Route: 062

REACTIONS (2)
  - OESOPHAGEAL CARCINOMA [None]
  - OESOPHAGEAL HAEMORRHAGE [None]
